FAERS Safety Report 19918853 (Version 2)
Quarter: 2021Q4

REPORT INFORMATION
  Report Type: Report from Study
  Country: IT (occurrence: IT)
  Receive Date: 20211004
  Receipt Date: 20211014
  Transmission Date: 20220303
  Serious: Yes (Life-Threatening, Hospitalization, Other)
  Sender: FDA-Public Use
  Company Number: IT-BRISTOL-MYERS SQUIBB COMPANY-BMS-2018-074824

PATIENT
  Age: 57 Year
  Sex: Female
  Weight: 59 kg

DRUGS (9)
  1. NIVOLUMAB [Suspect]
     Active Substance: NIVOLUMAB
     Indication: Renal cell carcinoma
     Dosage: 177 MILLIGRAM
     Route: 042
     Dates: start: 20180406, end: 20180716
  2. IPILIMUMAB [Suspect]
     Active Substance: IPILIMUMAB
     Indication: Renal cell carcinoma
     Dosage: 59 MILLIGRAM
     Route: 042
     Dates: start: 20180406, end: 20180716
  3. CABOZANTINIB [Suspect]
     Active Substance: CABOZANTINIB
     Indication: Renal cell carcinoma
     Dosage: 40 MILLIGRAM
     Route: 048
     Dates: start: 20180406, end: 20180720
  4. PREDNISONE [Concomitant]
     Active Substance: PREDNISONE
     Indication: Metabolic disorder
     Dosage: 25 MILLIGRAM
     Route: 048
     Dates: start: 20180807, end: 20180807
  5. PREDNISONE [Concomitant]
     Active Substance: PREDNISONE
     Dosage: 75 MILLIGRAM
     Route: 048
     Dates: start: 20180808, end: 20180823
  6. METHYLPREDNISOLONE ACETATE [Concomitant]
     Active Substance: METHYLPREDNISOLONE ACETATE
     Indication: Metabolic disorder
     Dosage: 1 DOSAGE FORM
     Route: 042
     Dates: start: 20180731
  7. METHYLPREDNISOLONE ACETATE [Concomitant]
     Active Substance: METHYLPREDNISOLONE ACETATE
     Dosage: 60 MILLIGRAM
     Route: 042
     Dates: start: 20180802, end: 20180806
  8. METHYLPREDNISOLONE ACETATE [Concomitant]
     Active Substance: METHYLPREDNISOLONE ACETATE
     Dosage: 40 MILLIGRAM
     Route: 042
     Dates: start: 20180807, end: 20180807
  9. LEVOTHYROXINE SODIUM [Concomitant]
     Active Substance: LEVOTHYROXINE SODIUM
     Indication: Hypothyroidism
     Dosage: 25 MILLIGRAM
     Route: 048
     Dates: start: 20180629

REACTIONS (1)
  - Intracardiac thrombus [Recovered/Resolved]

NARRATIVE: CASE EVENT DATE: 20180809
